FAERS Safety Report 9378145 (Version 2)
Quarter: 2013Q3

REPORT INFORMATION
  Report Type: Spontaneous
  Country: GB (occurrence: GB)
  Receive Date: 20130701
  Receipt Date: 20130823
  Transmission Date: 20140515
  Serious: Yes (Hospitalization)
  Sender: FDA-Public Use
  Company Number: GB-GLAXOSMITHKLINE-B0902584A

PATIENT
  Age: 45 Year
  Sex: Male

DRUGS (6)
  1. AVANDIA [Suspect]
     Indication: TYPE 2 DIABETES MELLITUS
     Dosage: 4MG TWICE PER DAY
     Route: 048
     Dates: start: 20020429, end: 20041231
  2. ATENOLOL [Concomitant]
  3. NOVOMIX [Concomitant]
  4. ATORVASTATIN [Concomitant]
  5. RAMIPRIL [Concomitant]
  6. ASPIRIN [Concomitant]

REACTIONS (1)
  - Myocardial infarction [Unknown]
